FAERS Safety Report 8505388-8 (Version None)
Quarter: 2012Q3

REPORT INFORMATION
  Report Type: 
  Country: None (occurrence: None)
  Receive Date: 20120712
  Receipt Date: 20120703
  Transmission Date: 20120928
  Serious: Yes (Hospitalization, Other)
  Sender: FDA-Public Use
  Company Number: US-009507513-1101USA03582

PATIENT

DRUGS (4)
  1. CALCIUM CARBONATE [Concomitant]
     Dates: start: 20010101
  2. MK-9278 [Concomitant]
     Dates: start: 19860101
  3. METICORTEN [Suspect]
     Indication: SYSTEMIC LUPUS ERYTHEMATOSUS
     Dates: start: 19840101
  4. FOSAMAX [Suspect]
     Indication: OSTEOPOROSIS
     Dosage: 70 MG, UNK
     Route: 048
     Dates: start: 20010514, end: 20100725

REACTIONS (30)
  - RENAL CYST [None]
  - STRESS URINARY INCONTINENCE [None]
  - OESOPHAGITIS [None]
  - POLYP COLORECTAL [None]
  - BLOOD GLUCOSE INCREASED [None]
  - VULVOVAGINAL BURNING SENSATION [None]
  - OMPHALITIS [None]
  - HAEMATURIA [None]
  - FALL [None]
  - CYSTITIS [None]
  - UTERINE DISORDER [None]
  - COLON ADENOMA [None]
  - FEMUR FRACTURE [None]
  - PLATELET COUNT INCREASED [None]
  - BLOOD DISORDER [None]
  - IDIOPATHIC THROMBOCYTOPENIC PURPURA [None]
  - MITRAL VALVE INCOMPETENCE [None]
  - DIABETES MELLITUS [None]
  - DYSPNOEA EXERTIONAL [None]
  - CONNECTIVE TISSUE DISORDER [None]
  - RECTAL HAEMORRHAGE [None]
  - SUPRAVENTRICULAR TACHYCARDIA [None]
  - PARAESTHESIA [None]
  - HAEMORRHAGE URINARY TRACT [None]
  - DIVERTICULUM [None]
  - POLYP [None]
  - RADICULITIS LUMBOSACRAL [None]
  - ARTHROPATHY [None]
  - HAEMOGLOBIN DECREASED [None]
  - TOOTHACHE [None]
